FAERS Safety Report 10736591 (Version 2)
Quarter: 2015Q1

REPORT INFORMATION
  Report Type: Spontaneous
  Country: CN (occurrence: CN)
  Receive Date: 20150126
  Receipt Date: 20150129
  Transmission Date: 20150721
  Serious: Yes (Other)
  Sender: FDA-Public Use
  Company Number: CN-009507513-1501CHN008466

PATIENT
  Age: 74 Year
  Sex: Male

DRUGS (9)
  1. ESTAZOLAM. [Interacting]
     Active Substance: ESTAZOLAM
     Indication: INSOMNIA
     Dosage: 1 MG, UNK
     Route: 048
  2. CLARITHROMYCIN. [Suspect]
     Active Substance: CLARITHROMYCIN
     Indication: ULCER
     Dosage: 0.5 G, BID
     Route: 048
  3. REMERON [Suspect]
     Active Substance: MIRTAZAPINE
     Indication: ANXIETY
     Dosage: 30 MG, QN
     Route: 048
  4. AMLODIPINE BESYLATE. [Concomitant]
     Active Substance: AMLODIPINE BESYLATE
  5. HOUTTUYNIA [Concomitant]
     Dosage: 2 DROPS, NASAL DRIP, QID
  6. CETIRIZINE HYDROCHLORIDE. [Interacting]
     Active Substance: CETIRIZINE HYDROCHLORIDE
     Dosage: 10 MG, QN
     Route: 048
  7. AMOXICILLIN. [Concomitant]
     Active Substance: AMOXICILLIN
     Dosage: 1.0 G, BID
     Route: 048
  8. VALSARTAN. [Concomitant]
     Active Substance: VALSARTAN
  9. PANTOLOC [Concomitant]
     Active Substance: PANTOPRAZOLE SODIUM
     Indication: ULCER
     Dosage: 40 MG, QN
     Route: 048

REACTIONS (3)
  - Toxicity to various agents [Unknown]
  - Drug interaction [Unknown]
  - Coma [Unknown]
